FAERS Safety Report 5113857-6 (Version None)
Quarter: 2006Q3

REPORT INFORMATION
  Report Type: 
  Country: None (occurrence: None)
  Receive Date: 20060921
  Receipt Date: 20060914
  Transmission Date: 20061208
  Serious: Yes (Other)
  Sender: FDA-Public Use
  Company Number: 2006111379

PATIENT
  Age: 78 Year
  Sex: Male
  Weight: 88.4514 kg

DRUGS (7)
  1. LIPITOR [Suspect]
     Indication: BLOOD CHOLESTEROL
     Dosage: 20 MG (20 MG, 1 IN 1 D)
     Dates: start: 20030101, end: 20060909
  2. PRILOSEC [Concomitant]
  3. ASPIRIN [Concomitant]
  4. LISINOPRIL [Concomitant]
  5. METOPROLOL (METOPROLOL) [Concomitant]
  6. IRON (IRON) [Concomitant]
  7. WARFARIN SODIUM [Concomitant]

REACTIONS (10)
  - ABDOMINAL PAIN [None]
  - ANAL HAEMORRHAGE [None]
  - BACK PAIN [None]
  - BUTTOCK PAIN [None]
  - CARDIAC OPERATION [None]
  - IMPAIRED WORK ABILITY [None]
  - INTERVERTEBRAL DISC DEGENERATION [None]
  - MUSCULOSKELETAL PAIN [None]
  - PAIN IN EXTREMITY [None]
  - SCIATIC NERVE INJURY [None]
